FAERS Safety Report 9877120 (Version 1)
Quarter: 2014Q1

REPORT INFORMATION
  Report Type: Spontaneous
  Country: US (occurrence: US)
  Receive Date: 20140206
  Receipt Date: 20140206
  Transmission Date: 20141002
  Serious: No
  Sender: FDA-Public Use
  Company Number: US-B.I. PHARMACEUTICALS,INC./RIDGEFIELD-2014-BI-04237BP

PATIENT
  Age: 57 Year
  Sex: Male
  Weight: 120 kg

DRUGS (3)
  1. PRADAXA [Suspect]
     Indication: ATRIAL FIBRILLATION
     Dosage: 300 MG
     Route: 048
     Dates: start: 20131215
  2. METOPROLOL [Concomitant]
     Indication: CARDIAC DISORDER
     Dosage: 150 MG
     Route: 048
     Dates: start: 20131215
  3. LISINOPRIL [Concomitant]
     Indication: CARDIAC DISORDER
     Dosage: 5 MG
     Route: 048
     Dates: start: 20131215

REACTIONS (1)
  - Cough [Not Recovered/Not Resolved]
